FAERS Safety Report 10153174 (Version 2)
Quarter: 2014Q2

REPORT INFORMATION
  Report Type: Spontaneous
  Country: GB (occurrence: GB)
  Receive Date: 20140505
  Receipt Date: 20140521
  Transmission Date: 20141212
  Serious: Yes (Hospitalization, Other)
  Sender: FDA-Public Use
  Company Number: GB-TEVA-477760ISR

PATIENT
  Age: 73 Year
  Sex: Male

DRUGS (3)
  1. AZILECT [Suspect]
     Indication: PARKINSON^S DISEASE
     Dosage: 1 MILLIGRAM DAILY; MORNINGS
     Route: 048
     Dates: start: 20140306, end: 20140506
  2. SINEMET [Concomitant]
     Indication: PARKINSON^S DISEASE
     Dosage: 750 MILLIGRAM DAILY;
     Route: 048
  3. SINEMET CR [Concomitant]
     Indication: PARKINSON^S DISEASE
     Dosage: 125 MILLIGRAM DAILY; NOCTE (EVENINGS)
     Route: 048

REACTIONS (7)
  - Hallucination [Not Recovered/Not Resolved]
  - Confusional state [Not Recovered/Not Resolved]
  - Blood sodium decreased [Not Recovered/Not Resolved]
  - Headache [Not Recovered/Not Resolved]
  - Convulsion [Unknown]
  - Sepsis [Unknown]
  - Fall [Unknown]
